FAERS Safety Report 20671617 (Version 1)
Quarter: 2022Q2

REPORT INFORMATION
  Report Type: Spontaneous
  Country: CN (occurrence: CN)
  Receive Date: 20220404
  Receipt Date: 20220404
  Transmission Date: 20220721
  Serious: Yes (Other)
  Sender: FDA-Public Use
  Company Number: CN-BAXTER-2022BAX007161

PATIENT
  Age: 17 Year
  Sex: Male
  Weight: 49.3 kg

DRUGS (16)
  1. CYCLOPHOSPHAMIDE [Suspect]
     Active Substance: CYCLOPHOSPHAMIDE
     Indication: Acute lymphocytic leukaemia
     Dosage: CYCLOPHOSPHAMIDE FOR INJECTION 1000 MG DILUTED WITH 0.9% SODIUM CHLORIDE INJECTION 500 ML.
     Route: 041
     Dates: start: 20220225, end: 20220225
  2. CYCLOPHOSPHAMIDE [Suspect]
     Active Substance: CYCLOPHOSPHAMIDE
     Dosage: DOSE RE-INTRODUCED. CYCLOPHOSPHAMIDE FOR INJECTION  DILUTED WITH 0.9% SODIUM CHLORIDE INJECTION
     Route: 041
  3. SODIUM CHLORIDE [Suspect]
     Active Substance: SODIUM CHLORIDE
     Indication: Medication dilution
     Dosage: CYCLOPHOSPHAMIDE FOR INJECTION 1000 MG DILUTED WITH 0.9% SODIUM CHLORIDE INJECTION 500 ML.
     Route: 041
     Dates: start: 20220225, end: 20220225
  4. SODIUM CHLORIDE [Suspect]
     Active Substance: SODIUM CHLORIDE
     Dosage: DOSE RE-INTRODUCED, CYCLOPHOSPHAMIDE FOR INJECTION DILUTED WITH 0.9% SODIUM CHLORIDE INJECTION.
     Route: 041
  5. SODIUM CHLORIDE [Suspect]
     Active Substance: SODIUM CHLORIDE
     Dosage: PEGASPARGASE INJECTION 3750 IU DILUTED WITH SODIUM CHLORIDE INJECTION 18 MG
     Route: 030
     Dates: start: 20220225, end: 20220225
  6. SODIUM CHLORIDE [Suspect]
     Active Substance: SODIUM CHLORIDE
     Dosage: DOSE RE-INTRODUCED, PEGASPARGASE INJECTION DILUTED WITH SODIUM CHLORIDE INJECTION.
     Route: 030
  7. SODIUM CHLORIDE [Suspect]
     Active Substance: SODIUM CHLORIDE
     Dosage: DAUNORUBICIN HYDROCHLORIDE FOR INJECTION 60 MG DILUTED WITH 0.9% SODIUM CHLORIDE INJECTION 250 ML.
     Route: 041
     Dates: start: 20220225, end: 20220227
  8. SODIUM CHLORIDE [Suspect]
     Active Substance: SODIUM CHLORIDE
     Dosage: DOSE RE-INTRODUCED, DAUNORUBICIN HYDROCHLORIDE FOR INJECTION DILUTED WITH 0.9% SODIUM CHLORIDE .
     Route: 041
  9. SODIUM CHLORIDE [Suspect]
     Active Substance: SODIUM CHLORIDE
     Dosage: VINCRISTINE SULFATE FOR INJECTION 1.9 MG, DILUTED WITH SODIUM CHLORIDE INJECTION 180 MG
     Route: 042
     Dates: start: 20220225, end: 20220304
  10. SODIUM CHLORIDE [Suspect]
     Active Substance: SODIUM CHLORIDE
     Dosage: DOSE RE-INTRODUCED, VINCRISTINE SULFATE FOR INJECTION, DILUTED WITH SODIUM CHLORIDE INJECTION
     Route: 042
  11. DAUNORUBICIN HYDROCHLORIDE [Suspect]
     Active Substance: DAUNORUBICIN HYDROCHLORIDE
     Indication: Acute lymphocytic leukaemia
     Dosage: DAUNORUBICIN HYDROCHLORIDE FOR INJECTION 60 MG DILUTED WITH 0.9% SODIUM CHLORIDE INJECTION 250 ML.
     Route: 041
     Dates: start: 20220225, end: 20220227
  12. DAUNORUBICIN HYDROCHLORIDE [Suspect]
     Active Substance: DAUNORUBICIN HYDROCHLORIDE
     Dosage: DOSE RE-INTRODUCED (DAUNORUBICIN HYDROCHLORIDE FOR INJECTION DILUTED WITH 0.9% SODIUM CHLORIDE INJEC
     Route: 041
  13. PEGASPARGASE [Suspect]
     Active Substance: PEGASPARGASE
     Indication: Acute lymphocytic leukaemia
     Dosage: PEGASPARGASE INJECTION DILUTED WITH SODIUM CHLORIDE INJECTION.
     Route: 030
     Dates: start: 20220225, end: 20220225
  14. PEGASPARGASE [Suspect]
     Active Substance: PEGASPARGASE
     Dosage: DOSE RE-INTRODUCED, PEGASPARGASE INJECTION DILUTED WITH SODIUM CHLORIDE INJECTION.
     Route: 030
  15. VINCRISTINE SULFATE [Suspect]
     Active Substance: VINCRISTINE SULFATE
     Indication: Acute lymphocytic leukaemia
     Dosage: VINCRISTINE SULFATE FOR INJECTION 1.9 MG, DILUTED WITH SODIUM CHLORIDE INJECTION 180 MG
     Route: 042
     Dates: start: 20220225, end: 20220304
  16. VINCRISTINE SULFATE [Suspect]
     Active Substance: VINCRISTINE SULFATE
     Dosage: DOSE RE-INTRODUCED, VINCRISTINE SULFATE FOR INJECTION, DILUTED WITH SODIUM CHLORIDE INJECTION.
     Route: 042

REACTIONS (2)
  - Myelosuppression [Recovering/Resolving]
  - Platelet count decreased [Recovering/Resolving]

NARRATIVE: CASE EVENT DATE: 20220308
